FAERS Safety Report 8888388 (Version 2)
Quarter: 2012Q4

REPORT INFORMATION
  Report Type: 
  Country: LV (occurrence: LV)
  Receive Date: 20121106
  Receipt Date: 20121130
  Transmission Date: 20130627
  Serious: Yes (Hospitalization)
  Sender: FDA-Public Use
  Company Number: LV-ABBOTT-12P-287-1002996-00

PATIENT
  Age: 7 Year
  Sex: Male
  Weight: 28 kg

DRUGS (5)
  1. KLACID [Suspect]
     Indication: PNEUMONIA
     Route: 048
     Dates: start: 20121022, end: 20121023
  2. BRONTEX [Concomitant]
     Indication: PNEUMONIA
     Route: 048
     Dates: start: 20121019, end: 20121024
  3. OMEPRAZOLE [Concomitant]
     Indication: GASTROINTESTINAL DISORDER
     Route: 048
     Dates: start: 20121019, end: 20121024
  4. SALBUTAMOL [Concomitant]
     Indication: PNEUMONIA
     Route: 055
     Dates: start: 20121019, end: 20121024
  5. FLUTICASONE PROPIONATE [Concomitant]
     Indication: PNEUMONIA
     Route: 055
     Dates: start: 20121019, end: 20121024

REACTIONS (3)
  - Dyspnoea [Recovered/Resolved]
  - Oedema mouth [Recovered/Resolved]
  - Lip oedema [Recovered/Resolved]
